FAERS Safety Report 14403866 (Version 1)
Quarter: 2018Q1

REPORT INFORMATION
  Report Type: Spontaneous
  Country: US (occurrence: US)
  Receive Date: 20180117
  Receipt Date: 20180117
  Transmission Date: 20180509
  Serious: Yes (Hospitalization)
  Sender: FDA-Public Use
  Company Number: US-ALKERMES INC.-ALK-2018-000213

PATIENT
  Age: 35 Year
  Sex: Male
  Weight: 83.9 kg

DRUGS (2)
  1. VIVITROL [Suspect]
     Active Substance: NALTREXONE
     Dosage: 380 MG, QMO
     Route: 030
     Dates: start: 2014
  2. VIVITROL [Suspect]
     Active Substance: NALTREXONE
     Indication: DRUG DEPENDENCE
     Dosage: 380 MG, QMO
     Route: 030
     Dates: start: 20180107

REACTIONS (6)
  - Sleep disorder [Not Recovered/Not Resolved]
  - Withdrawal syndrome [Recovered/Resolved]
  - Restless legs syndrome [Not Recovered/Not Resolved]
  - Hospitalisation [Unknown]
  - Substance abuse [Unknown]
  - Loss of personal independence in daily activities [Not Recovered/Not Resolved]
